FAERS Safety Report 7658004-1 (Version None)
Quarter: 2011Q3

REPORT INFORMATION
  Report Type: 
  Country: None (occurrence: None)
  Receive Date: 20110805
  Receipt Date: 20081015
  Transmission Date: 20111222
  Serious: Yes (Death, Other)
  Sender: FDA-Public Use
  Company Number: US-BAYER-US-2007-006401

PATIENT
  Age: 61 Year
  Sex: Male
  Weight: 102 kg

DRUGS (45)
  1. MAGNESIUM HYDROXIDE, ALUMINIUM HYDROXIDE GEL [Concomitant]
     Dosage: 15 ML, 2X/DAY
     Dates: start: 19950724
  2. IOHEXOL [Concomitant]
     Indication: AORTOGRAM
     Dosage: 132 ML, 1 DOSE
     Route: 042
     Dates: start: 19961230, end: 19961230
  3. ATENOLOL [Concomitant]
  4. MAGNEVIST [Suspect]
     Dosage: UNK, 1 DOSE
     Route: 042
     Dates: start: 20040108, end: 20040108
  5. PREDNISONE [Concomitant]
     Dosage: 25 MG, 1X/DAY
     Dates: start: 19950715
  6. AZATHIOPRINE [Concomitant]
     Dosage: 100 MG, 1X/DAY
     Dates: start: 19950715
  7. TECHNETIUM (99M TC) SESTAMIBI [Concomitant]
     Dosage: 502 MBQ, 1 DOSE
     Route: 042
     Dates: start: 19941128, end: 19941128
  8. IODINE, IOXAGLATE SODIUM, IOXAGLATE MEGLUMINE [Concomitant]
     Dosage: 167 ML, 1 DOSE
     Route: 042
     Dates: start: 19950530, end: 19950530
  9. ACETYLSALICYLIC ACID SRT [Concomitant]
  10. CYCLOSPORINE [Concomitant]
     Dosage: 250 MG, 2X/DAY
     Dates: start: 19950715
  11. NIFEDIPINE [Concomitant]
     Dosage: 30 MG, 1X/DAY
     Dates: start: 19950724
  12. THALLIUM (201 TL) [Concomitant]
     Dosage: 123 MBQ, 1 DOSE
     Route: 042
     Dates: start: 19941128, end: 19941128
  13. DOCUSATE SODIUM [Concomitant]
  14. TECHNETIUM TC 99M MPI MDP [Concomitant]
     Dosage: 803 MBQ, 1 DOSE
     Dates: start: 20040928, end: 20040928
  15. MAGNEVIST [Suspect]
     Dosage: UNK, 1 DOSE
     Dates: start: 20010515, end: 20010515
  16. CLOTRIMAZOLE [Concomitant]
     Dosage: 10 MG, 2X/DAY
     Dates: start: 19950724
  17. IOHEXOL [Concomitant]
     Dosage: 20 ML, 1 DOSE
     Route: 013
     Dates: start: 19980825, end: 19980825
  18. INSULIN [Concomitant]
     Indication: HYPERGLYCAEMIA
     Dosage: UNK, UNK
     Dates: start: 19961201
  19. LABETALOL HCL [Concomitant]
     Dosage: UNK, UNK
     Dates: start: 19980101
  20. LISINOPRIL [Concomitant]
     Dosage: UNK, UNK
     Dates: start: 19981001
  21. EPOETIN ALFA [Concomitant]
     Dosage: 6000 IU, UNK
     Dates: start: 20030520
  22. VITAMINS NOS, FOLIC ACID [Concomitant]
  23. MAGNEVIST [Suspect]
     Dosage: UNK, 1 DOSE
     Route: 042
     Dates: start: 20000302, end: 20000302
  24. MAGNEVIST [Suspect]
     Dosage: UNK, 1 DOSE
     Route: 042
     Dates: start: 20010817, end: 20010817
  25. MAGNEVIST [Suspect]
     Dosage: UNK, 1 DOSE
     Route: 042
     Dates: start: 20020812, end: 20020812
  26. TRIMETHOPRIM + SULFAMETHOXAZOLE [Concomitant]
     Dosage: UNK, 1X/DAY
     Dates: start: 19950724
  27. FUROSEMIDE [Concomitant]
     Dosage: 40 MG, 2X/DAY
     Dates: start: 19950724
  28. IOTALAMATE MEGLUMINE [Concomitant]
     Dosage: 200 ML, 1 DOSE
     Route: 017
     Dates: start: 19941107, end: 19941107
  29. ATORVASTATIN CALCIUM [Concomitant]
  30. MAGNEVIST [Suspect]
     Indication: NUCLEAR MAGNETIC RESONANCE IMAGING
     Dosage: 20 ML, 1 DOSE
     Route: 013
     Dates: start: 19980825, end: 19980825
  31. PREDNISONE [Concomitant]
     Dosage: 7.5 MG, UNK
     Route: 048
  32. MYCOPHENOLATE MOFETIL [Concomitant]
     Dosage: UNK, UNK
     Dates: start: 19980101
  33. MAGNEVIST [Suspect]
     Indication: ANGIOGRAM
     Dosage: UNK, 1 DOSE
     Route: 042
     Dates: start: 19980115, end: 19980115
  34. MAGNEVIST [Suspect]
     Dosage: UNK, 1 DOSE
     Route: 042
     Dates: start: 20010609, end: 20010609
  35. ACYCLOVIR [Concomitant]
     Dosage: 400 MG, 3X/DAY
     Dates: start: 19950715
  36. MANNITOL [Concomitant]
     Dosage: DURING DIALYSIS
  37. WARFARIN SODIUM [Concomitant]
  38. CEFEPIME [Concomitant]
  39. GLYBURIDE [Concomitant]
  40. CALCIUM ACETATE [Concomitant]
  41. METRONIDAZOLE [Concomitant]
  42. PARICALCITOL [Concomitant]
     Dosage: ON DIALYSIS
  43. INDIUM IN 111 CHLORIDE [Concomitant]
     Indication: COMPUTERISED TOMOGRAM
  44. DARBEPOETIN ALFA [Concomitant]
     Dosage: 100 MG, UNK
     Dates: start: 20040917
  45. ULTRAVIST 300 [Concomitant]
     Indication: ANGIOGRAM
     Dates: start: 20040608, end: 20040608

REACTIONS (14)
  - EMOTIONAL DISTRESS [None]
  - PAIN [None]
  - SCAR [None]
  - GAIT DISTURBANCE [None]
  - MUSCULAR WEAKNESS [None]
  - ANHEDONIA [None]
  - GENERAL PHYSICAL HEALTH DETERIORATION [None]
  - SKIN INDURATION [None]
  - INJURY [None]
  - ANXIETY [None]
  - SKIN DISCOLOURATION [None]
  - NEPHROGENIC SYSTEMIC FIBROSIS [None]
  - SENSORY LOSS [None]
  - DYSSTASIA [None]
